FAERS Safety Report 5367969-2 (Version None)
Quarter: 2007Q2

REPORT INFORMATION
  Report Type: 
  Country: None (occurrence: None)
  Receive Date: 20070622
  Receipt Date: 20070611
  Transmission Date: 20071010
  Serious: Yes (Other)
  Sender: FDA-Public Use
  Company Number: US-PFIZER INC-2007047974

PATIENT
  Sex: Female

DRUGS (3)
  1. NORVASC [Suspect]
     Indication: BLOOD PRESSURE
  2. HYDROCHLOROTHIAZIDE [Concomitant]
  3. DYNACIRC [Concomitant]
     Indication: BLOOD PRESSURE
     Route: 048
     Dates: start: 20070421

REACTIONS (3)
  - OEDEMA PERIPHERAL [None]
  - SWELLING FACE [None]
  - VISUAL ACUITY REDUCED [None]
